FAERS Safety Report 24316215 (Version 2)
Quarter: 2024Q3

REPORT INFORMATION
  Report Type: Spontaneous
  Country: DE (occurrence: DE)
  Receive Date: 20240913
  Receipt Date: 20240924
  Transmission Date: 20241017
  Serious: Yes (Hospitalization)
  Sender: BOEHRINGER INGELHEIM
  Company Number: DE-BoehringerIngelheim-2024-BI-051302

PATIENT
  Sex: Female

DRUGS (1)
  1. JARDIANCE [Suspect]
     Active Substance: EMPAGLIFLOZIN
     Indication: Renal failure

REACTIONS (1)
  - Cystitis interstitial [Recovering/Resolving]

NARRATIVE: CASE EVENT DATE: 20240701
